FAERS Safety Report 4798279-X (Version None)
Quarter: 2005Q4

REPORT INFORMATION
  Report Type: 
  Country: None (occurrence: None)
  Receive Date: 20051014
  Receipt Date: 20051010
  Transmission Date: 20060501
  Serious: Yes (Death)
  Sender: FDA-Public Use
  Company Number: 2005UW15197

PATIENT
  Age: 29 Year
  Sex: Male

DRUGS (3)
  1. SEROQUEL [Suspect]
     Indication: BIPOLAR DISORDER
     Route: 048
  2. LITHIUM [Suspect]
     Indication: BIPOLAR DISORDER
  3. UNSPECIFIED PRESCRIPTION DRUGS [Suspect]

REACTIONS (1)
  - ACCIDENTAL OVERDOSE [None]
